FAERS Safety Report 7562853-8 (Version None)
Quarter: 2011Q2

REPORT INFORMATION
  Report Type: 
  Country: None (occurrence: None)
  Receive Date: 20110622
  Receipt Date: 20110615
  Transmission Date: 20111010
  Serious: Yes (Death, Hospitalization, Other)
  Sender: FDA-Public Use
  Company Number: JP-ROCHE-755105

PATIENT
  Sex: Female

DRUGS (35)
  1. LASIX [Concomitant]
     Route: 048
     Dates: start: 20100806, end: 20100825
  2. PREDNISOLONE [Concomitant]
     Route: 048
     Dates: start: 20100731
  3. ALKERAN [Concomitant]
     Route: 048
  4. LASIX [Concomitant]
     Route: 048
     Dates: start: 20100925, end: 20101124
  5. OMEPRAZOLE [Concomitant]
     Dosage: FORM: ENTERIC CAOTING DRUG
     Route: 048
  6. PREDNISOLONE [Concomitant]
     Route: 041
     Dates: start: 20101204, end: 20110131
  7. LASIX [Concomitant]
     Route: 048
     Dates: start: 20100826, end: 20100905
  8. PAXIL [Concomitant]
     Dosage: PERORAL AGENT
     Route: 048
     Dates: start: 20100521, end: 20110214
  9. TOCILIZUMAB [Suspect]
     Route: 041
     Dates: start: 20101021, end: 20110117
  10. DIFLUCAN [Concomitant]
     Route: 048
     Dates: start: 20100123
  11. LANSOPRAZOLE [Concomitant]
     Dosage: PERORAL AGENT
     Route: 048
     Dates: start: 20100715, end: 20110214
  12. TOCILIZUMAB [Suspect]
     Route: 041
     Dates: start: 20110210, end: 20110210
  13. LASIX [Concomitant]
     Route: 048
     Dates: start: 20100918, end: 20100924
  14. ANPLAG [Concomitant]
     Dosage: FORM: PERORAL AGENT
     Route: 048
  15. FUNGIZONE [Concomitant]
     Route: 048
     Dates: end: 20110214
  16. FUROSEMIDE [Concomitant]
     Route: 048
     Dates: start: 20100521
  17. TOCILIZUMAB [Suspect]
     Route: 041
     Dates: start: 20110131, end: 20110131
  18. TOCILIZUMAB [Suspect]
     Route: 041
     Dates: start: 20110207, end: 20110207
  19. PREDNISOLONE [Concomitant]
     Dosage: FORM: PERORAL AGENT
     Route: 048
  20. PREDNISOLONE [Concomitant]
     Route: 048
     Dates: start: 20100521, end: 20100730
  21. LASIX [Concomitant]
     Dosage: FORM: PERORAL AGENT
     Route: 048
     Dates: start: 20100715, end: 20100805
  22. RISEDRONATE SODIUM [Concomitant]
     Route: 048
  23. TOCILIZUMAB [Suspect]
     Indication: CASTLEMAN'S DISEASE
     Route: 041
     Dates: start: 20091216, end: 20100924
  24. PREDNISOLONE [Concomitant]
     Route: 048
     Dates: end: 20100520
  25. LASIX [Concomitant]
     Route: 048
     Dates: start: 20100906, end: 20100917
  26. LASIX [Concomitant]
     Route: 048
     Dates: start: 20101125, end: 20101208
  27. LASIX [Concomitant]
     Route: 048
     Dates: start: 20101209, end: 20101215
  28. LASIX [Concomitant]
     Route: 048
     Dates: start: 20101216, end: 20110130
  29. SODIUM BICARBONATE [Concomitant]
     Dosage: FORM: PERORAL AGENT
     Route: 048
  30. NORMONAL [Concomitant]
     Route: 048
     Dates: end: 20110214
  31. ASPIRIN [Concomitant]
     Dosage: DOSE INTERVAL UNCERTAINTY, DOSE FORM:PERORAL AGENT
     Route: 048
     Dates: start: 20101128
  32. TOCILIZUMAB [Suspect]
     Route: 041
     Dates: start: 20110124, end: 20110124
  33. LASIX [Concomitant]
     Route: 048
     Dates: start: 20110131, end: 20110214
  34. SULFAMETHOXAZOLE [Concomitant]
     Route: 048
     Dates: end: 20110214
  35. ALLOPURINOL [Concomitant]
     Dosage: FORM: PERORAL AGENT
     Route: 048
     Dates: end: 20110214

REACTIONS (5)
  - PNEUMONIA ASPIRATION [None]
  - URINARY TRACT INFECTION [None]
  - MOUTH HAEMORRHAGE [None]
  - RENAL FAILURE [None]
  - TIBIA FRACTURE [None]
